FAERS Safety Report 13288126 (Version 2)
Quarter: 2017Q1

REPORT INFORMATION
  Report Type: Report from Study
  Country: US (occurrence: US)
  Receive Date: 20170302
  Receipt Date: 20170313
  Transmission Date: 20170428
  Serious: Yes (Hospitalization, Disabling)
  Sender: FDA-Public Use
  Company Number: US-EXELIXIS-CABO-17008385

PATIENT
  Age: 61 Year
  Sex: Male

DRUGS (23)
  1. AMOXICILLIN. [Concomitant]
     Active Substance: AMOXICILLIN
  2. OYSCO [Concomitant]
  3. OXYCODONE [Concomitant]
     Active Substance: OXYCODONE
  4. FENTANYL. [Concomitant]
     Active Substance: FENTANYL
  5. LOSARTAN. [Concomitant]
     Active Substance: LOSARTAN
  6. DIALYVITE [Concomitant]
     Active Substance: ASCORBIC ACID\BIOTIN\CALCIUM PANTOTHENATE\COBALAMIN\FOLIC ACID\NIACINAMIDE\PYRIDOXINE HYDROCHLORIDE\RIBOFLAVIN\THIAMINE MONONITRATE
  7. COMPAZINE [Concomitant]
     Active Substance: PROCHLORPERAZINE MALEATE
  8. LASIX [Concomitant]
     Active Substance: FUROSEMIDE
  9. CABOMETYX [Suspect]
     Active Substance: CABOZANTINIB S-MALATE
     Indication: BONE CANCER
     Dosage: 40 MG, QD
     Route: 048
     Dates: start: 20170125, end: 20170222
  10. CARVEDILOL. [Concomitant]
     Active Substance: CARVEDILOL
  11. DIAZEPAM. [Concomitant]
     Active Substance: DIAZEPAM
  12. GABAPENTIN. [Concomitant]
     Active Substance: GABAPENTIN
  13. NYSTATIN. [Concomitant]
     Active Substance: NYSTATIN
  14. PAROXETINE. [Concomitant]
     Active Substance: PAROXETINE
  15. HYDRALAZINE [Concomitant]
     Active Substance: HYDRALAZINE HYDROCHLORIDE
  16. TUMS [Concomitant]
     Active Substance: CALCIUM CARBONATE
  17. FLEXERIL [Concomitant]
     Active Substance: CYCLOBENZAPRINE HYDROCHLORIDE
  18. IMODIUM [Concomitant]
     Active Substance: LOPERAMIDE HYDROCHLORIDE
  19. TYLENOL [Concomitant]
     Active Substance: ACETAMINOPHEN
  20. AMLODIPINE [Concomitant]
     Active Substance: AMLODIPINE BESYLATE
  21. CABOMETYX [Suspect]
     Active Substance: CABOZANTINIB S-MALATE
     Indication: RENAL CANCER
     Dosage: 60 MG, QD
     Route: 048
     Dates: start: 20161207
  22. PHOSLO [Concomitant]
     Active Substance: CALCIUM ACETATE
  23. PREDNISONE. [Concomitant]
     Active Substance: PREDNISONE

REACTIONS (5)
  - Mental status changes [Recovering/Resolving]
  - Abnormal dreams [Recovering/Resolving]
  - Dyskinesia [Recovering/Resolving]
  - Hallucination [Recovering/Resolving]
  - Malignant neoplasm progression [Unknown]

NARRATIVE: CASE EVENT DATE: 201612
